FAERS Safety Report 8875805 (Version 3)
Quarter: 2014Q4

REPORT INFORMATION
  Report Type: Report from Study
  Country: US (occurrence: US)
  Receive Date: 20121030
  Receipt Date: 20141210
  Transmission Date: 20150529
  Serious: Yes (Death, Life-Threatening, Hospitalization, Other)
  Sender: FDA-Public Use
  Company Number: US-GLAXOSMITHKLINE-A0998247A

PATIENT
  Age: 68 Year
  Sex: Female
  Weight: 63 kg

DRUGS (1)
  1. PAZOPANIB [Suspect]
     Active Substance: PAZOPANIB
     Indication: NEOPLASM
     Route: 048
     Dates: start: 20120829, end: 20121004

REACTIONS (2)
  - Embolism [Not Recovered/Not Resolved]
  - Pneumonitis [Fatal]

NARRATIVE: CASE EVENT DATE: 20121004
